FAERS Safety Report 15135276 (Version 1)
Quarter: 2018Q3

REPORT INFORMATION
  Report Type: Spontaneous
  Country: PT (occurrence: PT)
  Receive Date: 20180712
  Receipt Date: 20180712
  Transmission Date: 20181010
  Serious: Yes (Hospitalization, Other)
  Sender: FDA-Public Use
  Company Number: PT-GLAXOSMITHKLINE-PT2018GSK122022

PATIENT
  Age: 27 Year
  Sex: Female

DRUGS (3)
  1. OLANZAPINE. [Suspect]
     Active Substance: OLANZAPINE
  2. BUDESONIDE. [Concomitant]
     Active Substance: BUDESONIDE
  3. FLUTICASONE PROPIONATE+SALMETEROL XINAFOATE [Suspect]
     Active Substance: FLUTICASONE PROPIONATE\SALMETEROL XINAFOATE

REACTIONS (9)
  - Abnormal behaviour [Unknown]
  - Altered state of consciousness [Unknown]
  - Hallucinations, mixed [Unknown]
  - Overdose [Unknown]
  - Delirium [Unknown]
  - Restlessness [Unknown]
  - Somnolence [Unknown]
  - Aggression [Unknown]
  - Weight increased [Unknown]
